FAERS Safety Report 6956449-6 (Version None)
Quarter: 2010Q3

REPORT INFORMATION
  Report Type: 
  Country: None (occurrence: None)
  Receive Date: 20100830
  Receipt Date: 20100825
  Transmission Date: 20110219
  Serious: Yes (Hospitalization, Other)
  Sender: FDA-Public Use
  Company Number: US-BAYER-200825348NA

PATIENT
  Age: 35 Year
  Sex: Male
  Weight: 154 kg

DRUGS (1)
  1. MAGNEVIST [Suspect]
     Indication: NUCLEAR MAGNETIC RESONANCE IMAGING
     Dosage: TOTAL DAILY DOSE: 20 ML
     Dates: start: 20071219, end: 20071219

REACTIONS (8)
  - AGGRESSION [None]
  - ANAPHYLACTIC REACTION [None]
  - CONFUSIONAL STATE [None]
  - DYSPNOEA [None]
  - FALL [None]
  - FLUSHING [None]
  - LETHARGY [None]
  - URINARY INCONTINENCE [None]
